FAERS Safety Report 7582621-0 (Version None)
Quarter: 2011Q2

REPORT INFORMATION
  Report Type: 
  Country: None (occurrence: None)
  Receive Date: 20110630
  Receipt Date: 20110622
  Transmission Date: 20111010
  Serious: Yes (Death, Hospitalization)
  Sender: FDA-Public Use
  Company Number: US-ELI_LILLY_AND_COMPANY-US201008000494

PATIENT
  Sex: Female

DRUGS (11)
  1. FORTEO [Suspect]
     Indication: OSTEOPOROSIS
     Dosage: 20 UG, DAILY (1/D)
     Dates: start: 20100601
  2. CRESTOR [Concomitant]
  3. TOPROL-XL [Concomitant]
  4. FORTEO [Suspect]
     Dosage: 20 UG, DAILY (1/D)
  5. FORTEO [Suspect]
     Dosage: 20 UG, DAILY (1/D)
  6. VITAMIN D [Concomitant]
  7. FORTEO [Suspect]
     Dosage: 20 UG, QD
     Route: 065
  8. CALCIUM CARBONATE [Concomitant]
  9. FORTEO [Suspect]
     Dosage: 20 UG, DAILY (1/D)
  10. FIBER [Concomitant]
  11. CLONIDINE [Concomitant]

REACTIONS (8)
  - PNEUMONIA [None]
  - SCOLIOSIS [None]
  - PAIN IN EXTREMITY [None]
  - INJECTION SITE PAIN [None]
  - MUSCLE SPASMS [None]
  - KYPHOSIS [None]
  - DIARRHOEA [None]
  - RESPIRATORY FAILURE [None]
